FAERS Safety Report 19410635 (Version 2)
Quarter: 2021Q2

REPORT INFORMATION
  Report Type: Spontaneous
  Country: US (occurrence: US)
  Receive Date: 20210614
  Receipt Date: 20210617
  Transmission Date: 20210717
  Serious: Yes (Other)
  Sender: FDA-Public Use
  Company Number: US-GW PHARMA-202106USGW02817

PATIENT

DRUGS (4)
  1. OXCARBAZEPINE. [Concomitant]
     Active Substance: OXCARBAZEPINE
     Indication: SEIZURE
     Dosage: 150 MG
     Route: 065
  2. PHENOBARBITAL. [Concomitant]
     Active Substance: PHENOBARBITAL
     Indication: SEIZURE
     Dosage: 100 MG
     Route: 065
  3. EPIDIOLEX [Suspect]
     Active Substance: CANNABIDIOL
     Indication: SEIZURE
     Dosage: 22.04 MG/KG/DAY, 1000 MILLIGRAM, BID
     Route: 048
     Dates: start: 2021
  4. EPIDIOLEX [Suspect]
     Active Substance: CANNABIDIOL
     Indication: EPILEPSY
     Dosage: 27.56 MG/KG/DAY, 1250 MILLIGRAM, BID
     Route: 048
     Dates: start: 2021, end: 2021

REACTIONS (3)
  - Product dose omission issue [Unknown]
  - Prescribed overdose [Unknown]
  - Seizure [Not Recovered/Not Resolved]

NARRATIVE: CASE EVENT DATE: 20210604
